FAERS Safety Report 5037003-2 (Version None)
Quarter: 2006Q2

REPORT INFORMATION
  Report Type: 
  Country: None (occurrence: None)
  Receive Date: 20060623
  Receipt Date: 20060613
  Transmission Date: 20061013
  Serious: Yes (Hospitalization)
  Sender: FDA-Public Use
  Company Number: 2006068194

PATIENT
  Age: 35 Year
  Sex: Female

DRUGS (6)
  1. ALPRAZOLAM [Suspect]
     Indication: SUICIDE ATTEMPT
     Dosage: 14 MG (14 MG) ORAL
     Route: 048
     Dates: start: 20060524
  2. PAXIL [Concomitant]
  3. TETRAMIDE (MIANSERIN HYDROCHLORIDE) [Concomitant]
  4. NITRAZEPAM [Concomitant]
  5. DEPAKENE [Concomitant]
  6. CHLOPROMAZINE (CHLORPROMAZINE) [Concomitant]

REACTIONS (9)
  - ANXIETY [None]
  - BLOOD PRESSURE DECREASED [None]
  - DEPRESSION [None]
  - DRUG TOXICITY [None]
  - HEART RATE INCREASED [None]
  - INTENTIONAL OVERDOSE [None]
  - LIVER DISORDER [None]
  - PANIC ATTACK [None]
  - SUICIDE ATTEMPT [None]
